FAERS Safety Report 21856354 (Version 1)
Quarter: 2023Q1

REPORT INFORMATION
  Report Type: Spontaneous
  Country: PL (occurrence: PL)
  Receive Date: 20230112
  Receipt Date: 20230112
  Transmission Date: 20230418
  Serious: Yes (Other)
  Sender: FDA-Public Use
  Company Number: PL-KRKA-PL2022K16926LIT

PATIENT
  Age: 5 Decade
  Sex: Male

DRUGS (6)
  1. DEXAMETHASONE [Suspect]
     Active Substance: DEXAMETHASONE
     Indication: Uveitis
     Dosage: IN EYE DROPS
     Route: 065
  2. PREDNISONE [Suspect]
     Active Substance: PREDNISONE
     Indication: Uveitis
     Dosage: MAINTENANCE DOSE 10 MG
     Route: 048
     Dates: start: 2010
  3. DEXAMETHASONE [Suspect]
     Active Substance: DEXAMETHASONE
     Indication: Uveitis
     Dosage: INITIAL DOSE OF 6 MG (IN DECREASING DOSES)
     Route: 042
     Dates: start: 2010
  4. TROPICAMIDE [Concomitant]
     Active Substance: TROPICAMIDE
     Indication: Uveitis
     Dosage: 1% EYE DROPS
  5. METHOTREXATE [Concomitant]
     Active Substance: METHOTREXATE
     Indication: Ankylosing spondylitis
     Dates: start: 2008, end: 2010
  6. METHOTREXATE [Concomitant]
     Active Substance: METHOTREXATE
     Dates: start: 201705

REACTIONS (2)
  - Cataract [Recovered/Resolved]
  - Therapy non-responder [Unknown]

NARRATIVE: CASE EVENT DATE: 20100101
